FAERS Safety Report 9941922 (Version 2)
Quarter: 2014Q1

REPORT INFORMATION
  Report Type: Report from Study
  Country: US (occurrence: US)
  Receive Date: 20140303
  Receipt Date: 20140303
  Transmission Date: 20141002
  Serious: No
  Sender: FDA-Public Use
  Company Number: US-ABBVIE-13P-163-1035885-00

PATIENT
  Age: 32 Year
  Sex: Female

DRUGS (9)
  1. HUMIRA [Suspect]
     Indication: COLITIS ULCERATIVE
     Route: 058
     Dates: start: 20130111, end: 20130111
  2. HUMIRA [Suspect]
     Route: 058
  3. LEVORA [Concomitant]
     Indication: ORAL CONTRACEPTION
     Dosage: DAILY
     Route: 048
  4. ZYRTEC [Concomitant]
     Indication: SEASONAL ALLERGY
     Dosage: DAILY
  5. SYNTHROID [Concomitant]
     Indication: HYPOTHYROIDISM
  6. HYDROCHLORTHIAZID [Concomitant]
     Indication: HYPERTENSION
     Dosage: DAILY
  7. OMEPRAZOLE [Concomitant]
     Indication: GASTROOESOPHAGEAL REFLUX DISEASE
     Dosage: DAILY
  8. OXYCODONE [Concomitant]
     Indication: PAIN
     Dosage: AS NEEDED
  9. TYLENOL [Concomitant]
     Indication: PAIN
     Dosage: 2 GRAMS AS NEEDED

REACTIONS (4)
  - Injection site pain [Recovered/Resolved]
  - Injection site erythema [Recovered/Resolved]
  - Injection site erythema [Not Recovered/Not Resolved]
  - Injection site erythema [Not Recovered/Not Resolved]
